FAERS Safety Report 7395107-3 (Version None)
Quarter: 2011Q2

REPORT INFORMATION
  Report Type: 
  Country: None (occurrence: None)
  Receive Date: 20110405
  Receipt Date: 20110309
  Transmission Date: 20111010
  Serious: No
  Sender: FDA-Public Use
  Company Number: US-B.I. PHARMACEUTICALS,INC./RIDGEFIELD-2011-BP-07970BP

PATIENT
  Age: 68 Year
  Sex: Female

DRUGS (6)
  1. MULTIVITAMIN [Concomitant]
     Indication: PROPHYLAXIS
  2. DIGOXIN [Concomitant]
     Indication: ATRIAL FIBRILLATION
  3. JANUMET [Concomitant]
     Indication: DIABETES MELLITUS
  4. DYAZIDE [Concomitant]
     Indication: CARDIAC FAILURE CONGESTIVE
  5. AVALIDE [Concomitant]
     Indication: CARDIAC FAILURE CONGESTIVE
  6. PRADAXA [Suspect]
     Indication: ATRIAL FIBRILLATION
     Dosage: 150 MG
     Route: 048

REACTIONS (5)
  - FEELING COLD [None]
  - HEADACHE [None]
  - WHEEZING [None]
  - FATIGUE [None]
  - PERIPHERAL COLDNESS [None]
